FAERS Safety Report 19460325 (Version 1)
Quarter: 2021Q2

REPORT INFORMATION
  Report Type: Spontaneous
  Country: FR (occurrence: FR)
  Receive Date: 20210625
  Receipt Date: 20210625
  Transmission Date: 20210717
  Serious: Yes (Other)
  Sender: FDA-Public Use
  Company Number: FR-TEVA-2021-FR-1925067

PATIENT
  Age: 61 Year
  Sex: Male
  Weight: 77 kg

DRUGS (2)
  1. ROACTEMRA 20 MG/ML, SOLUTION A DILUER POUR PERFUSION [Suspect]
     Active Substance: TOCILIZUMAB
     Indication: COVID-19
     Dosage: UNIT DOSE: 160 MG
     Route: 042
     Dates: start: 20210415, end: 20210415
  2. AZITHROMYCINE [Suspect]
     Active Substance: AZITHROMYCIN
     Indication: COVID-19
     Route: 048
     Dates: start: 20210409, end: 20210413

REACTIONS (1)
  - Hepatocellular injury [Recovering/Resolving]

NARRATIVE: CASE EVENT DATE: 20210419
